FAERS Safety Report 8274697-2 (Version None)
Quarter: 2012Q2

REPORT INFORMATION
  Report Type: 
  Country: None (occurrence: None)
  Receive Date: 20120411
  Receipt Date: 20120403
  Transmission Date: 20120825
  Serious: Yes (Death, Hospitalization)
  Sender: FDA-Public Use
  Company Number: US-ACTELION-A-NJ2012-61741

PATIENT

DRUGS (5)
  1. ADCIRCA [Concomitant]
  2. TRACLEER [Suspect]
     Indication: PULMONARY ARTERIAL HYPERTENSION
     Dosage: UNK
     Route: 048
     Dates: start: 20110415, end: 20120328
  3. CALCIUM CHANNEL BLOCKERS [Concomitant]
  4. ASPIRIN [Concomitant]
  5. PLAVIX [Concomitant]

REACTIONS (5)
  - RESPIRATORY FAILURE [None]
  - CHRONIC OBSTRUCTIVE PULMONARY DISEASE [None]
  - DYSPNOEA [None]
  - PULMONARY CONGESTION [None]
  - PNEUMONIA [None]
